FAERS Safety Report 23440093 (Version 1)
Quarter: 2024Q1

REPORT INFORMATION
  Report Type: Spontaneous
  Country: GB (occurrence: GB)
  Receive Date: 20240124
  Receipt Date: 20240124
  Transmission Date: 20240410
  Serious: Yes (Other)
  Sender: FDA-Public Use
  Company Number: GB-009507513-2401GBR012524

PATIENT
  Sex: Female

DRUGS (1)
  1. KEYTRUDA [Suspect]
     Active Substance: PEMBROLIZUMAB
     Indication: Malignant melanoma
     Dosage: 400MG/100ML INFUSED OVER 30 MINUTES AT A RATE 200ML/HR, EVERY 6 WEEKS
     Route: 030
     Dates: start: 20230329

REACTIONS (5)
  - Syncope [Recovered/Resolved]
  - Vascular access complication [Recovered/Resolved]
  - Fear of injection [Recovered/Resolved]
  - Presyncope [Recovered/Resolved]
  - Incorrect route of product administration [Unknown]

NARRATIVE: CASE EVENT DATE: 20230329
